FAERS Safety Report 8208137-6 (Version None)
Quarter: 2012Q1

REPORT INFORMATION
  Report Type: 
  Country: None (occurrence: None)
  Receive Date: 20120314
  Receipt Date: 20120307
  Transmission Date: 20120608
  Serious: Yes (Hospitalization, Other)
  Sender: FDA-Public Use
  Company Number: PHFR2012GB001668

PATIENT
  Age: 46 Year
  Sex: Male

DRUGS (3)
  1. VALPROATE SODIUM [Concomitant]
  2. CLOZAPINE [Suspect]
     Indication: SCHIZOPHRENIA
     Dosage: 150 MG, BID
     Route: 048
  3. DIAZEPAM [Concomitant]

REACTIONS (6)
  - PULMONARY OEDEMA [None]
  - CARDIOMYOPATHY [None]
  - DYSPNOEA [None]
  - LOWER RESPIRATORY TRACT INFECTION [None]
  - PLATELET COUNT DECREASED [None]
  - EJECTION FRACTION DECREASED [None]
